FAERS Safety Report 8965852 (Version 2)
Quarter: 2013Q1

REPORT INFORMATION
  Report Type: Spontaneous
  Country: FR (occurrence: FR)
  Receive Date: 20121214
  Receipt Date: 20130108
  Transmission Date: 20140127
  Serious: Yes (Death, Hospitalization)
  Sender: FDA-Public Use
  Company Number: FR-UCBSA-072823

PATIENT
  Age: 55 Year
  Sex: Male

DRUGS (8)
  1. KEPPRA [Suspect]
     Route: 048
     Dates: start: 201204, end: 201212
  2. DIFFU-K [Suspect]
     Dosage: DAILY DOSE: 2 CAPSULES
     Route: 048
     Dates: start: 2012, end: 201212
  3. MEDROL [Suspect]
     Dosage: 4 MG VARIABLE DOSE
     Route: 048
     Dates: start: 2012, end: 201212
  4. TEMODAL [Suspect]
     Indication: CHEMOTHERAPY
     Dosage: DAILY DOSE: 130 ML
     Route: 048
     Dates: start: 20120606, end: 20121014
  5. INEXIUM [Suspect]
     Dosage: DAILY DOSE: 40 MG
     Route: 048
     Dates: start: 2012, end: 20121106
  6. PARACETAMOL [Suspect]
     Dosage: VARIABLE DOSE
     Route: 048
     Dates: end: 201212
  7. VOGALENE [Concomitant]
     Dosage: UNKNOWN DOSE
     Dates: start: 201206, end: 201212
  8. HALDOL [Concomitant]
     Dosage: UNKNOWN DOSE
     Dates: start: 201206, end: 201212

REACTIONS (5)
  - Death [Fatal]
  - Hepatitis acute [Not Recovered/Not Resolved]
  - Mixed liver injury [Not Recovered/Not Resolved]
  - Somnolence [Unknown]
  - Headache [Unknown]
